FAERS Safety Report 25628827 (Version 2)
Quarter: 2025Q3

REPORT INFORMATION
  Report Type: Spontaneous
  Country: AU (occurrence: AU)
  Receive Date: 20250731
  Receipt Date: 20250807
  Transmission Date: 20251020
  Serious: Yes (Hospitalization, Other)
  Sender: NOVO NORDISK
  Company Number: AU-NOVOPROD-1486146

PATIENT
  Age: 5 Year
  Sex: Male
  Weight: 20.7 kg

DRUGS (4)
  1. NOVORAPID [Suspect]
     Active Substance: INSULIN ASPART
     Indication: Product used for unknown indication
  2. NOVORAPID [Suspect]
     Active Substance: INSULIN ASPART
  3. NOVORAPID [Suspect]
     Active Substance: INSULIN ASPART
  4. INSULIN GLARGINE [Concomitant]
     Active Substance: INSULIN GLARGINE
     Dosage: 7 IU, QD

REACTIONS (6)
  - Blood ketone body increased [Recovering/Resolving]
  - Hyperglycaemia [Recovering/Resolving]
  - Infection [Unknown]
  - Inflammation [Unknown]
  - Increased insulin requirement [Unknown]
  - Product quality issue [Unknown]
